FAERS Safety Report 18794937 (Version 1)
Quarter: 2021Q1

REPORT INFORMATION
  Report Type: Report from Study
  Country: TH (occurrence: TH)
  Receive Date: 20210127
  Receipt Date: 20210127
  Transmission Date: 20210419
  Serious: Yes (Death, Other)
  Sender: FDA-Public Use
  Company Number: TH-BAYER-2021-039398

PATIENT
  Age: 39 Year
  Sex: Male

DRUGS (1)
  1. STIVARGA [Suspect]
     Active Substance: REGORAFENIB
     Indication: COLORECTAL CANCER
     Dosage: UNK
     Dates: start: 20201106

REACTIONS (5)
  - Death [Fatal]
  - Fall [None]
  - Hypokalaemia [None]
  - Heart rate irregular [None]
  - Syncope [None]

NARRATIVE: CASE EVENT DATE: 20210122
